FAERS Safety Report 8973452 (Version 2)
Quarter: 2013Q1

REPORT INFORMATION
  Report Type: Spontaneous
  Country: GB (occurrence: GB)
  Receive Date: 20121219
  Receipt Date: 20130222
  Transmission Date: 20140127
  Serious: Yes (Death, Other)
  Sender: FDA-Public Use
  Company Number: GB-JNJFOC-20121205402

PATIENT
  Sex: Male

DRUGS (3)
  1. ABIRATERONE [Suspect]
     Indication: PROSTATE CANCER
     Route: 048
     Dates: start: 20120319
  2. ANTIPLATELET [Suspect]
     Indication: ANTIPLATELET THERAPY
     Route: 065
  3. PREDNISONE [Suspect]
     Indication: PROSTATE CANCER
     Route: 048
     Dates: start: 20120319

REACTIONS (2)
  - Disease progression [Fatal]
  - Thrombocytopenia [Unknown]
